FAERS Safety Report 12562440 (Version 2)
Quarter: 2016Q3

REPORT INFORMATION
  Report Type: Report from Study
  Country: CN (occurrence: CN)
  Receive Date: 20160715
  Receipt Date: 20160722
  Transmission Date: 20161109
  Serious: Yes (Hospitalization)
  Sender: FDA-Public Use
  Company Number: PHHY2016CN095401

PATIENT
  Age: 70 Year
  Sex: Male
  Weight: 83 kg

DRUGS (3)
  1. SIMVASTATIN. [Concomitant]
     Active Substance: SIMVASTATIN
     Indication: LIPIDS ABNORMAL
     Dosage: 40 MG, QN
     Route: 065
     Dates: start: 20131203, end: 20131224
  2. IRBESARTAN. [Concomitant]
     Active Substance: IRBESARTAN
     Indication: HYPERTENSION
     Dosage: 150 MG, QD
     Route: 065
     Dates: start: 20131203, end: 20131204
  3. EXFORGE [Suspect]
     Active Substance: AMLODIPINE BESYLATE\VALSARTAN
     Indication: HYPERTENSION
     Dosage: 1 DF, QD
     Route: 048
     Dates: start: 201304

REACTIONS (3)
  - Arrhythmia [Unknown]
  - Coronary artery stenosis [Recovering/Resolving]
  - Vascular calcification [Unknown]

NARRATIVE: CASE EVENT DATE: 20131203
